FAERS Safety Report 16850754 (Version 1)
Quarter: 2019Q3

REPORT INFORMATION
  Report Type: Spontaneous
  Country: US (occurrence: US)
  Receive Date: 20190925
  Receipt Date: 20190925
  Transmission Date: 20191005
  Serious: No
  Sender: FDA-Public Use
  Company Number: US-THERAPEUTICSMD-2019TMD01972

PATIENT
  Sex: Female
  Weight: 67.12 kg

DRUGS (3)
  1. IMVEXXY [Suspect]
     Active Substance: ESTRADIOL
     Indication: DYSPAREUNIA
  2. IMVEXXY [Suspect]
     Active Substance: ESTRADIOL
     Indication: MENOPAUSE
  3. IMVEXXY [Suspect]
     Active Substance: ESTRADIOL
     Indication: VAGINAL OPERATION
     Dosage: 10 ?G EVERY 5 DAYS BEFORE BED
     Route: 067
     Dates: start: 201906, end: 20190708

REACTIONS (5)
  - Fungal infection [Recovered/Resolved]
  - Off label use [Recovered/Resolved]
  - Allergic reaction to excipient [Recovered/Resolved]
  - Vaginal haemorrhage [Recovered/Resolved]
  - Vulvovaginal pruritus [Recovered/Resolved]

NARRATIVE: CASE EVENT DATE: 2019
